FAERS Safety Report 9011018 (Version 1)
Quarter: 2013Q1

REPORT INFORMATION
  Report Type: Spontaneous
  Country: US (occurrence: US)
  Receive Date: 20130109
  Receipt Date: 20130109
  Transmission Date: 20140127
  Serious: Yes (Death)
  Sender: FDA-Public Use
  Company Number: US-PFIZER INC-2013004306

PATIENT
  Age: 51 Year
  Sex: Male

DRUGS (4)
  1. ALPRAZOLAM [Suspect]
  2. HYDROCODONE W/ACETAMINOPHEN [Suspect]
  3. ZOLPIDEM [Suspect]
  4. DIPHENHYDRAMINE [Suspect]

REACTIONS (3)
  - Completed suicide [Fatal]
  - Cardiac arrest [Fatal]
  - Respiratory arrest [Fatal]
